FAERS Safety Report 5501082-6 (Version None)
Quarter: 2007Q4

REPORT INFORMATION
  Report Type: 
  Country: None (occurrence: None)
  Receive Date: 20071029
  Receipt Date: 20071018
  Transmission Date: 20080405
  Serious: Yes (Death)
  Sender: FDA-Public Use
  Company Number: JP-PFIZER INC-2007068668

PATIENT
  Sex: Male

DRUGS (13)
  1. ZITHROMAX [Suspect]
     Indication: OPPORTUNISTIC INFECTION PROPHYLAXIS
     Dosage: DAILY DOSE:1200MG
     Route: 048
     Dates: start: 20060401, end: 20060410
  2. COMBIVIR [Concomitant]
     Route: 048
  3. STOCRIN [Concomitant]
     Route: 048
  4. BAKTAR [Concomitant]
     Route: 048
  5. ACUATIM [Concomitant]
     Route: 062
  6. MYSER [Concomitant]
     Route: 062
  7. LORAZEPAM [Concomitant]
     Route: 048
  8. TOLEDOMIN [Concomitant]
     Route: 048
  9. ESTAZOLAM [Concomitant]
     Route: 048
  10. AMOBAN [Concomitant]
     Route: 048
  11. NITRAZEPAM [Concomitant]
     Route: 048
  12. DEPAKENE [Concomitant]
     Route: 048
  13. HORIZON [Concomitant]

REACTIONS (1)
  - COMPLETED SUICIDE [None]
